FAERS Safety Report 16690370 (Version 2)
Quarter: 2019Q3

REPORT INFORMATION
  Report Type: Spontaneous
  Country: US (occurrence: US)
  Receive Date: 20190810
  Receipt Date: 20190814
  Transmission Date: 20191004
  Serious: Yes (Death)
  Sender: FDA-Public Use
  Company Number: US-LUNDBECK-DKLU3002246

PATIENT
  Age: 1 Year
  Sex: Female
  Weight: 10 kg

DRUGS (2)
  1. SABRIL [Suspect]
     Active Substance: VIGABATRIN
     Indication: INFANTILE SPASMS
     Route: 048
     Dates: start: 20190607
  2. SABRIL [Suspect]
     Active Substance: VIGABATRIN
     Route: 048
     Dates: start: 20190630, end: 20190727

REACTIONS (1)
  - Therapy cessation [Fatal]

NARRATIVE: CASE EVENT DATE: 20190727
